FAERS Safety Report 6908086-7 (Version None)
Quarter: 2010Q3

REPORT INFORMATION
  Report Type: 
  Country: None (occurrence: None)
  Receive Date: 20100716
  Receipt Date: 20100106
  Transmission Date: 20110219
  Serious: Yes (Other)
  Sender: FDA-Public Use
  Company Number: 2010002743

PATIENT
  Sex: Female

DRUGS (1)
  1. CELEBREX [Suspect]
     Dates: start: 19970101

REACTIONS (1)
  - HYPERTENSION [None]
